FAERS Safety Report 9732515 (Version 1)
Quarter: 2013Q4

REPORT INFORMATION
  Report Type: Spontaneous
  Country: US (occurrence: None)
  Receive Date: 20131204
  Receipt Date: 20131204
  Transmission Date: 20140711
  Serious: Yes (Life-Threatening)
  Sender: FDA-Public Use
  Company Number: None

PATIENT
  Sex: 0

DRUGS (1)
  1. HALOPERIDOL [Suspect]
     Indication: DEPRESSION
     Dates: start: 20131029, end: 20131115

REACTIONS (6)
  - Agitation [None]
  - Anxiety [None]
  - Rash [None]
  - Pruritus [None]
  - Insomnia [None]
  - Feeling abnormal [None]
